FAERS Safety Report 12798099 (Version 1)
Quarter: 2016Q3

REPORT INFORMATION
  Report Type: Spontaneous
  Country: US (occurrence: US)
  Receive Date: 20160929
  Receipt Date: 20160929
  Transmission Date: 20161109
  Serious: Yes (Hospitalization, Other)
  Sender: FDA-Public Use
  Company Number: None

PATIENT
  Age: 19 Year
  Sex: Female
  Weight: 40.86 kg

DRUGS (4)
  1. EPIPEN [Concomitant]
     Active Substance: EPINEPHRINE
  2. XANAX [Concomitant]
     Active Substance: ALPRAZOLAM
  3. SKYLA [Suspect]
     Active Substance: LEVONORGESTREL
     Dates: start: 20160429, end: 20160915
  4. LEXAPRO [Concomitant]
     Active Substance: ESCITALOPRAM OXALATE

REACTIONS (6)
  - Mental disorder [None]
  - Feeling abnormal [None]
  - Suicidal ideation [None]
  - Disturbance in attention [None]
  - Anxiety [None]
  - Frustration tolerance decreased [None]

NARRATIVE: CASE EVENT DATE: 20160905
